FAERS Safety Report 5271275-4 (Version None)
Quarter: 2007Q1

REPORT INFORMATION
  Report Type: 
  Country: None (occurrence: None)
  Receive Date: 20070315
  Receipt Date: 20070306
  Transmission Date: 20070707
  Serious: Yes (Death, Hospitalization)
  Sender: FDA-Public Use
  Company Number: 2007SP002461

PATIENT
  Age: 46 Year
  Sex: Male

DRUGS (9)
  1. TEMODAL [Suspect]
     Indication: MALIGNANT GLIOMA
     Dosage: 75 MG/M2; PO
     Route: 048
     Dates: start: 20061206, end: 20070117
  2. PANODIL (CON.) [Concomitant]
  3. OMEPRAZOL /00661201/ (CON.) [Concomitant]
  4. LAXOBERAL (CON.) [Concomitant]
  5. BETAPRED (CON.) [Concomitant]
  6. TRADOLAN (CON.) [Concomitant]
  7. MYCOSTATIN  /00036501/ (CON.) [Concomitant]
  8. BACTRIM FORTE (CON.) [Concomitant]
  9. RADIATION THERAPY (CON.) [Concomitant]

REACTIONS (3)
  - HEADACHE [None]
  - HYDROCEPHALUS [None]
  - PULMONARY EMBOLISM [None]
